FAERS Safety Report 25225441 (Version 1)
Quarter: 2025Q2

REPORT INFORMATION
  Report Type: Spontaneous
  Country: GB (occurrence: GB)
  Receive Date: 20250422
  Receipt Date: 20250422
  Transmission Date: 20250716
  Serious: Yes (Other)
  Sender: B BRAUN
  Company Number: GB-B.Braun Medical Inc.-2175369

PATIENT
  Age: 36 Year
  Sex: Female

DRUGS (1)
  1. ACETAMINOPHEN [Suspect]
     Active Substance: ACETAMINOPHEN
     Indication: Pain
     Dates: start: 20250409

REACTIONS (1)
  - Extravasation [Unknown]
